FAERS Safety Report 7040200-8 (Version None)
Quarter: 2010Q3

REPORT INFORMATION
  Report Type: 
  Country: None (occurrence: None)
  Receive Date: 20100929
  Receipt Date: 20100802
  Transmission Date: 20110219
  Serious: Yes (Other)
  Sender: FDA-Public Use
  Company Number: US-WYE-H15438610

PATIENT
  Age: 60 Year
  Sex: Female
  Weight: 111.23 kg

DRUGS (11)
  1. PRISTIQ [Suspect]
     Indication: DEPRESSION
     Dosage: EITHER 5 MG OR 50 MG TABLETS DAILY, ORAL
     Route: 048
     Dates: start: 20100301, end: 20100301
  2. BETAPACE [Concomitant]
  3. COUMADIN [Concomitant]
  4. ABILIFY [Concomitant]
  5. CARAFATE [Concomitant]
  6. ASPIRIN [Concomitant]
  7. AVALIDE [Concomitant]
  8. WELCHOL [Concomitant]
  9. TOPAMAX [Concomitant]
  10. SYNTHROID [Concomitant]
  11. ALDATCTONE (SPIRONOLACTONE) [Concomitant]

REACTIONS (2)
  - CHEST DISCOMFORT [None]
  - PALPITATIONS [None]
